FAERS Safety Report 4783414-X (Version None)
Quarter: 2005Q3

REPORT INFORMATION
  Report Type: 
  Country: None (occurrence: None)
  Receive Date: 20050928
  Receipt Date: 20050928
  Transmission Date: 20060218
  Serious: No
  Sender: FDA-Public Use
  Company Number: None

PATIENT
  Age: 66 Year
  Sex: Female
  Weight: 68.0396 kg

DRUGS (1)
  1. ZETIA [Suspect]
     Indication: GLUCOSE TOLERANCE IMPAIRED
     Dosage: 1 DAILY

REACTIONS (3)
  - CHEST PAIN [None]
  - PRURITUS [None]
  - PULMONARY CONGESTION [None]
